FAERS Safety Report 8935020 (Version 1)
Quarter: 2012Q4

REPORT INFORMATION
  Report Type: 
  Country: US (occurrence: US)
  Receive Date: 20121129
  Receipt Date: 20121129
  Transmission Date: 20130627
  Serious: Yes (Life-Threatening, Hospitalization)
  Sender: FDA-Public Use
  Company Number: US-B.I. PHARMACEUTICALS,INC./RIDGEFIELD-2012-BI-01391GD

PATIENT
  Age: 84 Year
  Sex: Male

DRUGS (2)
  1. DABIGATRAN ETEXILATE [Suspect]
     Indication: ATRIAL FIBRILLATION
     Dosage: 300 mg
  2. DABIGATRAN ETEXILATE [Suspect]
     Indication: ISCHAEMIC STROKE

REACTIONS (6)
  - Rectal haemorrhage [Recovered/Resolved]
  - Procedural haemorrhage [Recovered/Resolved]
  - Coagulopathy [Recovered/Resolved]
  - Large intestine perforation [Unknown]
  - Pneumoperitoneum [Unknown]
  - Pulmonary oedema [Unknown]
